FAERS Safety Report 7464502-6 (Version None)
Quarter: 2011Q2

REPORT INFORMATION
  Report Type: 
  Country: None (occurrence: None)
  Receive Date: 20110509
  Receipt Date: 20110426
  Transmission Date: 20111010
  Serious: Yes (Hospitalization)
  Sender: FDA-Public Use
  Company Number: AU-JNJFOC-20110412149

PATIENT
  Age: 62 Year
  Sex: Female
  Weight: 72.9 kg

DRUGS (7)
  1. GRANISETRON HCL [Concomitant]
     Indication: PROPHYLAXIS OF NAUSEA AND VOMITING
     Route: 042
  2. CALCIUM-SANDOZ F [Concomitant]
     Indication: ROUTINE HEALTH MAINTENANCE
     Route: 065
  3. DEXAMETHASONE PHOSPHATE [Concomitant]
     Indication: PROPHYLAXIS OF NAUSEA AND VOMITING
     Route: 065
  4. MIRTAZAPINE [Concomitant]
     Indication: DEPRESSION
     Route: 065
  5. DOXORUBICIN HCL [Suspect]
     Indication: OVARIAN CANCER
     Route: 042
  6. RABEPRAZOLE SODIUM [Concomitant]
     Indication: OROPHARYNGEAL BLISTERING
     Route: 065
  7. PARACETAMOL [Concomitant]
     Indication: PYREXIA
     Route: 065

REACTIONS (1)
  - UROSEPSIS [None]
